FAERS Safety Report 10044661 (Version 2)
Quarter: 2014Q2

REPORT INFORMATION
  Report Type: Report from Study
  Country: BR (occurrence: BR)
  Receive Date: 20140328
  Receipt Date: 20140408
  Transmission Date: 20141212
  Serious: No
  Sender: FDA-Public Use
  Company Number: BR-ACTELION-A-CH2014-96516

PATIENT
  Age: 63 Year
  Sex: Female

DRUGS (10)
  1. TRACLEER [Suspect]
     Indication: PULMONARY ARTERIAL HYPERTENSION
     Dosage: 125 MG, BID
     Route: 048
     Dates: start: 200907
  2. TRACLEER [Suspect]
     Dosage: 62.5 MG, BID
     Route: 048
     Dates: start: 201403
  3. SPIRONOLACTONE [Concomitant]
     Dosage: 25 MG, QD
  4. HYDROCHLOROTHIAZIDE [Concomitant]
     Dosage: 25 MG, QD
  5. ATORVASTATIN [Concomitant]
     Dosage: 40 MG, QD
  6. LEVOTHYROXINE [Concomitant]
     Dosage: 50 MCG, QD
  7. OMEPRAZOLE [Concomitant]
     Dosage: 40 MG, QD
  8. CLONAZEPAM [Concomitant]
     Dosage: 3 MG, UNK
  9. BUDESONIDE W/FORMOTEROL FUMARATE [Concomitant]
     Dosage: UNK MCG, BID
  10. DOMPERIDONE [Concomitant]
     Dosage: 100 MG, BID

REACTIONS (1)
  - Cholecystitis [Recovering/Resolving]
